FAERS Safety Report 7990457-1 (Version None)
Quarter: 2011Q4

REPORT INFORMATION
  Report Type: 
  Country: None (occurrence: None)
  Receive Date: 20111219
  Receipt Date: 20110722
  Transmission Date: 20120403
  Serious: No
  Sender: FDA-Public Use
  Company Number: US-ASTRAZENECA-2011SE39150

PATIENT
  Age: 51 Year
  Sex: Male

DRUGS (4)
  1. MICARDIS [Concomitant]
     Dosage: 80/25 DAILY
  2. METFORMIN HCL [Concomitant]
  3. CRESTOR [Suspect]
     Route: 048
  4. ATENOLOL [Suspect]
     Route: 048

REACTIONS (2)
  - DIABETES MELLITUS [None]
  - GENERAL PHYSICAL HEALTH DETERIORATION [None]
